FAERS Safety Report 7989543-1 (Version None)
Quarter: 2011Q4

REPORT INFORMATION
  Report Type: 
  Country: None (occurrence: None)
  Receive Date: 20111219
  Receipt Date: 20110922
  Transmission Date: 20120403
  Serious: No
  Sender: FDA-Public Use
  Company Number: US-ASTRAZENECA-2011SE45430

PATIENT
  Age: 82 Year
  Sex: Female
  Weight: 70.3 kg

DRUGS (5)
  1. CALCIUM [Concomitant]
  2. VITAMIN D [Concomitant]
  3. CRESTOR [Suspect]
     Dosage: 10 MG SAMPLES IN HALF
     Route: 048
  4. ASPIRIN [Concomitant]
  5. CRESTOR [Suspect]
     Route: 048

REACTIONS (5)
  - VULVOVAGINAL PRURITUS [None]
  - LOW DENSITY LIPOPROTEIN INCREASED [None]
  - MYALGIA [None]
  - WRONG TECHNIQUE IN DRUG USAGE PROCESS [None]
  - ARTHRALGIA [None]
